FAERS Safety Report 18699974 (Version 2)
Quarter: 2022Q4

REPORT INFORMATION
  Report Type: Spontaneous
  Country: US (occurrence: US)
  Receive Date: 20210104
  Receipt Date: 20221012
  Transmission Date: 20230112
  Serious: Yes (Death, Other)
  Sender: FDA-Public Use
  Company Number: US-SAARTEMIS-SAC202112290381

PATIENT
  Age: 84 Year
  Sex: Female

DRUGS (1)
  1. ZANTAC [Suspect]
     Active Substance: RANITIDINE HYDROCHLORIDE
     Indication: Hyperchlorhydria
     Dosage: UNK UNK, QD
     Dates: start: 201501, end: 201902

REACTIONS (2)
  - Hepatic cancer stage IV [Fatal]
  - Gallbladder cancer [Unknown]

NARRATIVE: CASE EVENT DATE: 20190201
